FAERS Safety Report 21794395 (Version 1)
Quarter: 2022Q4

REPORT INFORMATION
  Report Type: Spontaneous
  Country: PK (occurrence: PK)
  Receive Date: 20221229
  Receipt Date: 20221229
  Transmission Date: 20230113
  Serious: Yes (Hospitalization)
  Sender: FDA-Public Use
  Company Number: PK-AMGEN-PAKSP2022222440

PATIENT
  Age: 16 Day
  Sex: Male

DRUGS (5)
  1. CINACALCET HYDROCHLORIDE [Suspect]
     Active Substance: CINACALCET HYDROCHLORIDE
     Indication: Hypercalcaemia
     Dosage: 3 MILLIGRAM, BID
     Route: 048
     Dates: start: 2021
  2. CINACALCET HYDROCHLORIDE [Suspect]
     Active Substance: CINACALCET HYDROCHLORIDE
     Indication: Off label use
  3. BCG VACCINE [Concomitant]
     Active Substance: BCG VACCINE
     Dosage: UNK
  4. PAMIDRONATE [Concomitant]
     Active Substance: PAMIDRONATE DISODIUM
     Indication: Hypercalcaemia
     Dosage: UNK
     Dates: start: 2021
  5. FUROSEMIDE [Concomitant]
     Active Substance: FUROSEMIDE
     Dosage: 1 MILLIGRAM PER KILOGRAM, BID
     Route: 040
     Dates: start: 2021

REACTIONS (3)
  - Tetany [Unknown]
  - Blood calcium increased [Recovered/Resolved]
  - Off label use [Unknown]

NARRATIVE: CASE EVENT DATE: 20210101
